FAERS Safety Report 6298774-0 (Version None)
Quarter: 2009Q3

REPORT INFORMATION
  Report Type: 
  Country: None (occurrence: None)
  Receive Date: 20090806
  Receipt Date: 20070521
  Transmission Date: 20100115
  Serious: Yes (Hospitalization)
  Sender: FDA-Public Use
  Company Number: US-ASTRAZENECA-2006UW22178

PATIENT
  Age: 624 Month
  Sex: Female
  Weight: 81.2 kg

DRUGS (16)
  1. SEROQUEL [Suspect]
     Indication: DEPRESSION
     Dosage: 25 MG - 200 MG/DAY
     Route: 048
     Dates: start: 19970101, end: 20061001
  2. SEROQUEL [Suspect]
     Dosage: 200MG, 2 TABS IN THE A.M. AND 4 TABS IN THE P.M.
     Route: 048
     Dates: start: 20050205, end: 20050317
  3. RISPERDAL [Suspect]
  4. ZYPREXA [Suspect]
  5. GEODON [Concomitant]
     Dates: start: 20050701, end: 20060201
  6. GEODON [Concomitant]
     Dosage: DAILY
     Dates: start: 20050406
  7. METFORMIN [Concomitant]
     Indication: DIABETES MELLITUS
     Dates: start: 20040201
  8. KLONOPIN [Concomitant]
     Indication: PANIC ATTACK
     Dates: start: 20050205
  9. KLONOPIN [Concomitant]
     Indication: ANXIETY
     Dates: start: 20050205
  10. EFFEXOR XR [Concomitant]
     Dosage: 150MG,2 DAILY
     Dates: start: 20050205
  11. SYNTHROID [Concomitant]
     Dosage: 0.075MG, 1 DAILY
     Dates: start: 20050317
  12. HYDROCHLOROTHIAZIDE [Concomitant]
     Indication: HYPERTENSION
     Dosage: 25MG, 1 DAILY
     Dates: start: 20050513
  13. ATENOLOL [Concomitant]
     Indication: HYPERTENSION
     Dosage: 25MG TO 200MG
     Route: 048
     Dates: start: 20050516
  14. PREVACID [Concomitant]
     Dosage: 30MG, 1 DAILY
     Dates: start: 20050808
  15. PAXIL [Concomitant]
     Indication: DEPRESSION
     Dosage: 12.5MG, 1 DAILY
     Dates: start: 20060405
  16. AMBIEN CR [Concomitant]
     Indication: INSOMNIA
     Dosage: 10MG-12.5MG
     Dates: start: 20050317

REACTIONS (7)
  - ABDOMINAL HERNIA [None]
  - DIABETES MELLITUS [None]
  - HERNIA [None]
  - HIATUS HERNIA [None]
  - TYPE 1 DIABETES MELLITUS [None]
  - TYPE 2 DIABETES MELLITUS [None]
  - UMBILICAL HERNIA [None]
